FAERS Safety Report 7991087-8 (Version None)
Quarter: 2011Q4

REPORT INFORMATION
  Report Type: 
  Country: None (occurrence: None)
  Receive Date: 20111219
  Receipt Date: 20111212
  Transmission Date: 20120403
  Serious: Yes (Hospitalization)
  Sender: FDA-Public Use
  Company Number: CA-SANOFI-AVENTIS-2011SA081091

PATIENT
  Age: 84 Year
  Sex: Male

DRUGS (10)
  1. LEVOTHYROXINE SODIUM [Concomitant]
  2. GLYCERYL TRINITRATE [Concomitant]
     Dosage: IN THE FORM OF PATCH
  3. ATORVASTATIN [Concomitant]
  4. WARFARIN SODIUM [Concomitant]
  5. CLOPIDOGREL BISULFATE [Suspect]
     Indication: ACUTE CORONARY SYNDROME
     Route: 065
  6. ACETYLSALICYLIC ACID SRT [Concomitant]
  7. METOPROLOL [Concomitant]
  8. CLOPIDOGREL BISULFATE [Suspect]
     Indication: ATRIAL FIBRILLATION
     Route: 065
  9. FUROSEMIDE [Concomitant]
  10. CANDESARTAN CILEXETIL [Concomitant]

REACTIONS (1)
  - NEUTROPENIA [None]
